FAERS Safety Report 5621531-2 (Version None)
Quarter: 2008Q1

REPORT INFORMATION
  Report Type: 
  Country: None (occurrence: None)
  Receive Date: 20080211
  Receipt Date: 20080130
  Transmission Date: 20080703
  Serious: Yes (Life-Threatening, Hospitalization, Other)
  Sender: FDA-Public Use
  Company Number: US-NOVOPROD-269458

PATIENT
  Sex: Male
  Weight: 67 kg

DRUGS (16)
  1. NORDITROPIN NORDIFLEX [Suspect]
     Indication: HAEMODIALYSIS
     Dosage: 1.4 MG, QD
     Route: 058
     Dates: start: 20071010, end: 20071119
  2. NORDITROPIN NORDIFLEX [Suspect]
     Dosage: 1.4 MG, QD
     Route: 058
     Dates: start: 20071127
  3. COLACE [Concomitant]
     Indication: FAECES HARD
     Dosage: 200 MG, QD
     Route: 048
  4. CLONIDINE [Concomitant]
     Indication: HYPERTENSION
     Dosage: .2 MG, TID
     Route: 048
     Dates: start: 20070219
  5. SULAR [Concomitant]
     Indication: HEPATIC FUNCTION ABNORMAL
     Dosage: 30 MG, QD
     Route: 048
     Dates: start: 20050427
  6. SENSIPAR [Concomitant]
     Indication: MINERAL SUPPLEMENTATION
     Dosage: 90 MG, QD
     Route: 048
     Dates: start: 20070221
  7. LISINOPRIL [Concomitant]
     Indication: HYPERTENSION
     Dosage: 10 MG, QD
     Route: 048
     Dates: start: 20071126
  8. PLAVIX [Concomitant]
     Indication: THROMBOSIS PROPHYLAXIS
     Dosage: 75 MG, QD
     Route: 048
     Dates: start: 20060710
  9. ZOCOR [Concomitant]
     Indication: CARDIOVASCULAR EVENT PROPHYLAXIS
     Dosage: 20 MG, QD
     Route: 048
     Dates: start: 20061009
  10. COREG [Concomitant]
     Indication: CARDIAC FAILURE
     Dosage: 6.25 MG, BID
     Route: 048
     Dates: start: 20071126
  11. MULTIVITAMIN                       /00831701/ [Concomitant]
     Indication: VITAMIN SUPPLEMENTATION
     Dosage: UNK, QD
     Dates: start: 20061009
  12. NITROL [Concomitant]
     Dosage: 1 INCH EVERY 6 HOURS
     Route: 061
  13. LEVAQUIN [Concomitant]
     Dosage: 500 MG, QOD
  14. DUONEB [Concomitant]
     Dosage: EVERY 6 HOURS
  15. TYLENOL (CAPLET) [Concomitant]
     Dosage: UNK, PRN
     Route: 048
  16. AMBIEN [Concomitant]
     Dosage: UNK, PRN
     Route: 048

REACTIONS (1)
  - MYOCARDIAL INFARCTION [None]
